FAERS Safety Report 8242025-4 (Version None)
Quarter: 2012Q1

REPORT INFORMATION
  Report Type: 
  Country: None (occurrence: None)
  Receive Date: 20120329
  Receipt Date: 20120321
  Transmission Date: 20120608
  Serious: No
  Sender: FDA-Public Use
  Company Number: US-BIOGENIDEC-2012BI010119

PATIENT
  Age: 35 Year
  Sex: Male

DRUGS (1)
  1. TYSABRI [Suspect]
     Indication: MULTIPLE SCLEROSIS
     Route: 042
     Dates: start: 20120113

REACTIONS (5)
  - BLOOD PRESSURE INCREASED [None]
  - ANGER [None]
  - INTERVERTEBRAL DISC DISORDER [None]
  - LUMBAR VERTEBRAL FRACTURE [None]
  - POLLAKIURIA [None]
